FAERS Safety Report 5917989-1 (Version None)
Quarter: 2008Q4

REPORT INFORMATION
  Report Type: 
  Country: None (occurrence: None)
  Receive Date: 20081014
  Receipt Date: 20081004
  Transmission Date: 20090506
  Serious: Yes (Hospitalization, Other)
  Sender: FDA-Public Use
  Company Number: US-ELI_LILLY_AND_COMPANY-US200810001126

PATIENT
  Sex: Female
  Weight: 66.667 kg

DRUGS (10)
  1. BYETTA [Suspect]
     Indication: TYPE 2 DIABETES MELLITUS
     Dosage: 5 UG, 2/D
     Route: 058
     Dates: end: 20060101
  2. BYETTA [Suspect]
     Dosage: 10 UG, 2/D
     Route: 058
     Dates: start: 20060101
  3. GLYBURIDE [Concomitant]
     Indication: TYPE 2 DIABETES MELLITUS
     Dosage: UNK, 2/D
  4. LIPITOR [Concomitant]
     Indication: BLOOD CHOLESTEROL
     Dosage: 10 MG, DAILY (1/D)
  5. LISINOPRIL [Concomitant]
     Indication: BLOOD PRESSURE
     Dosage: 10 MG, DAILY (1/D)
  6. TRICOR [Concomitant]
     Indication: BLOOD PRESSURE
     Dosage: 145 MG, DAILY (1/D)
  7. DIGOXIN [Concomitant]
     Indication: CARDIAC DISORDER
     Dosage: 12.5 MG, DAILY (1/D)
  8. DIOVAN [Concomitant]
     Indication: BLOOD PRESSURE
     Dosage: 320 MG, DAILY (1/D)
  9. NORVASC [Concomitant]
     Indication: BLOOD PRESSURE
     Dosage: UNK, DAILY (1/D)
  10. ASPIRIN [Concomitant]
     Indication: CARDIAC DISORDER
     Dosage: 325 MG, DAILY (1/D)

REACTIONS (7)
  - AORTIC SURGERY [None]
  - ARTHRALGIA [None]
  - COLON CANCER RECURRENT [None]
  - FALL [None]
  - GAIT DISTURBANCE [None]
  - OVARIAN CANCER RECURRENT [None]
  - SKIN DISCOLOURATION [None]
